FAERS Safety Report 9067420 (Version 1)
Quarter: 2013Q1

REPORT INFORMATION
  Report Type: Spontaneous
  Country: US (occurrence: US)
  Receive Date: 20130214
  Receipt Date: 20130214
  Transmission Date: 20140127
  Serious: Yes (Hospitalization, Other)
  Sender: FDA-Public Use
  Company Number: US-B.I. PHARMACEUTICALS,INC./RIDGEFIELD-2013-BI-03704BP

PATIENT
  Sex: Female
  Weight: 52 kg

DRUGS (1)
  1. SPIRIVA [Suspect]
     Indication: CHRONIC OBSTRUCTIVE PULMONARY DISEASE
     Dosage: 18 MCG
     Route: 055
     Dates: start: 2004

REACTIONS (5)
  - Breast cancer [Unknown]
  - Coma [Recovered/Resolved]
  - Atonic urinary bladder [Unknown]
  - Tinnitus [Not Recovered/Not Resolved]
  - Deafness bilateral [Not Recovered/Not Resolved]
